FAERS Safety Report 13857638 (Version 2)
Quarter: 2017Q3

REPORT INFORMATION
  Report Type: Spontaneous
  Country: US (occurrence: US)
  Receive Date: 20170811
  Receipt Date: 20170818
  Transmission Date: 20171127
  Serious: Yes (Other)
  Sender: FDA-Public Use
  Company Number: US-WEST-WARD PHARMACEUTICALS CORP.-US-H14001-17-02841

PATIENT
  Sex: Female

DRUGS (3)
  1. MESALAMINE. [Suspect]
     Active Substance: MESALAMINE
     Indication: PRODUCT USED FOR UNKNOWN INDICATION
     Route: 065
  2. BALSALAZIDE [Suspect]
     Active Substance: BALSALAZIDE
     Route: 048
  3. BALSALAZIDE [Suspect]
     Active Substance: BALSALAZIDE
     Indication: PRODUCT USED FOR UNKNOWN INDICATION
     Route: 048

REACTIONS (8)
  - Frequent bowel movements [Unknown]
  - Anal pruritus [Unknown]
  - Underdose [Unknown]
  - Gastrointestinal pain [Unknown]
  - Haemorrhoids [Unknown]
  - Intestinal mass [Unknown]
  - Anal haemorrhage [Unknown]
  - Haematochezia [Unknown]

NARRATIVE: CASE EVENT DATE: 20170731
